FAERS Safety Report 10238713 (Version 1)
Quarter: 2014Q2

REPORT INFORMATION
  Report Type: Spontaneous
  Country: CN (occurrence: None)
  Receive Date: 20140612
  Receipt Date: 20140612
  Transmission Date: 20141212
  Serious: Yes (Other)
  Sender: FDA-Public Use
  Company Number: FK201402216

PATIENT
  Age: 35 Year
  Sex: Male

DRUGS (1)
  1. INTRALIPID [Suspect]
     Indication: NUTRITIONAL SUPPLEMENTATION
     Route: 041
     Dates: start: 20131121, end: 20131126

REACTIONS (4)
  - Palpitations [None]
  - Chest discomfort [None]
  - Supraventricular extrasystoles [None]
  - Arrhythmia [None]
